FAERS Safety Report 24524760 (Version 2)
Quarter: 2025Q2

REPORT INFORMATION
  Report Type: Other
  Country: IT (occurrence: IT)
  Receive Date: 20241019
  Receipt Date: 20250418
  Transmission Date: 20250716
  Serious: Yes (Hospitalization, Other)
  Sender: ANI
  Company Number: IT-ANIPHARMA-012532

PATIENT
  Age: 41 Year
  Sex: Female

DRUGS (6)
  1. LEUCOVORIN [Suspect]
     Active Substance: LEUCOVORIN\LEUCOVORIN CALCIUM
     Indication: Cholangiocarcinoma
  2. OXALIPLATIN [Concomitant]
     Active Substance: OXALIPLATIN
     Indication: Cholangiocarcinoma
  3. GEMCITABINE [Concomitant]
     Active Substance: GEMCITABINE
     Indication: Cholangiocarcinoma
  4. CAPECITABINE [Concomitant]
     Active Substance: CAPECITABINE
     Indication: Cholangiocarcinoma
  5. FLUOROURACIL [Concomitant]
     Active Substance: FLUOROURACIL
     Indication: Cholangiocarcinoma
  6. IRINOTECAN [Concomitant]
     Active Substance: IRINOTECAN
     Indication: Cholangiocarcinoma

REACTIONS (1)
  - Hepatotoxicity [Unknown]
